FAERS Safety Report 6350627-5 (Version None)
Quarter: 2009Q3

REPORT INFORMATION
  Report Type: 
  Country: None (occurrence: None)
  Receive Date: 20090911
  Receipt Date: 20090622
  Transmission Date: 20100115
  Serious: No
  Sender: FDA-Public Use
  Company Number: US-ABBOTT-07P-163-0365466-00

PATIENT
  Sex: Male
  Weight: 93.07 kg

DRUGS (4)
  1. HUMIRA [Suspect]
     Indication: REITER'S SYNDROME
     Dosage: PEN
     Route: 058
     Dates: start: 20060801
  2. HUMIRA [Suspect]
     Dosage: SYRINGE
     Route: 058
     Dates: start: 20060101, end: 20060801
  3. PREDNISONE [Concomitant]
     Indication: DRUG USE FOR UNKNOWN INDICATION
  4. CYCLOBENZAPRINE HCL [Concomitant]
     Indication: DRUG USE FOR UNKNOWN INDICATION

REACTIONS (1)
  - INCORRECT DOSE ADMINISTERED [None]
